FAERS Safety Report 18016593 (Version 3)
Quarter: 2020Q4

REPORT INFORMATION
  Report Type: Spontaneous
  Country: US (occurrence: US)
  Receive Date: 20200713
  Receipt Date: 20201229
  Transmission Date: 20210113
  Serious: Yes (Death, Hospitalization, Other)
  Sender: FDA-Public Use
  Company Number: US-PARATEK PHARMACEUTICALS, INC.-2020PTK00077

PATIENT
  Age: 33 Year
  Sex: Male
  Weight: 64.6 kg

DRUGS (52)
  1. NUZYRA [Suspect]
     Active Substance: OMADACYCLINE
     Indication: MYCOBACTERIUM ABSCESSUS INFECTION
  2. SEROQUEL [Concomitant]
     Active Substance: QUETIAPINE FUMARATE
     Dosage: 50 MG, 1X/DAY
     Route: 048
  3. ALBUTEROL. [Concomitant]
     Active Substance: ALBUTEROL
     Dosage: TAKE 3 ML (2.5 TOTAL) BY NEBULIZATION EVERY 6 HOURS AS NEEDED
  4. HUMALOG KWIKPEN [Concomitant]
     Active Substance: INSULIN LISPRO
     Dosage: 0-6 U, BEFORE EVERY MEAL AND AT BEDTIME, AS DIRECTED
     Route: 058
     Dates: end: 2020
  5. CRESEMBA [Concomitant]
     Active Substance: ISAVUCONAZONIUM SULFATE
     Dosage: 372 MG, 1X/DAY
     Route: 048
  6. FLOVENT HFA [Concomitant]
     Active Substance: FLUTICASONE PROPIONATE
  7. CEFOXITIN [Concomitant]
     Active Substance: CEFOXITIN SODIUM
  8. NUZYRA [Suspect]
     Active Substance: OMADACYCLINE
     Indication: PNEUMONIA
     Dosage: 300 MG, 1X/DAY
     Route: 048
     Dates: start: 20200117
  9. ZITHROMAX [Concomitant]
     Active Substance: AZITHROMYCIN DIHYDRATE
     Dosage: 250 MG, 3X/WEEK ON MONDAY, WEDNESDAY, FRIDAY
     Route: 048
     Dates: end: 2020
  10. BEDAQUILINE [Concomitant]
     Active Substance: BEDAQUILINE
     Dosage: 200 MG, 3X/WEEK ON MONDAY, WEDNESDAY, FRIDAY
     Route: 048
  11. NEURONTIN [Concomitant]
     Active Substance: GABAPENTIN
     Dosage: 1200 MG, 1X/DAY EVERY EVENING
     Route: 048
  12. MELATONIN [Concomitant]
     Active Substance: MELATONIN
     Dosage: 5 MG, 1X/DAY
     Route: 048
  13. CIPROFLOXACIN. [Concomitant]
     Active Substance: CIPROFLOXACIN
  14. ELIQUIS [Concomitant]
     Active Substance: APIXABAN
  15. HUMULIN N U-100 KWIKPEN [Concomitant]
  16. ZOVIRAX [Concomitant]
     Active Substance: ACYCLOVIR
     Dosage: 400 MG, 2X/DAY
     Route: 048
  17. MEPRON [Concomitant]
     Active Substance: ATOVAQUONE
     Dosage: 1500 MG, 1X/DAY
     Route: 048
  18. NEURONTIN [Concomitant]
     Active Substance: GABAPENTIN
     Dosage: 800 MG, 1X/DAY EVERY AFTERNOON
     Route: 048
  19. DELTASONE [Concomitant]
     Active Substance: PREDNISONE
     Dosage: 10 MG, 1X/DAY
     Route: 048
  20. ADDERALL [Concomitant]
     Active Substance: AMPHETAMINE ASPARTATE\AMPHETAMINE SULFATE\DEXTROAMPHETAMINE SACCHARATE\DEXTROAMPHETAMINE SULFATE
     Dosage: 10 MG, 2X/DAY
     Route: 048
  21. NEURONTIN [Concomitant]
     Active Substance: GABAPENTIN
     Dosage: 800 MG, 1X/DAY EVERY MORNING
     Route: 048
  22. PRILOSEC [Concomitant]
     Active Substance: OMEPRAZOLE MAGNESIUM
     Dosage: 40 MG, 2X/DAY
  23. DEMADEX [Concomitant]
     Active Substance: TORSEMIDE
     Dosage: 40 MG, 2X/DAY
     Route: 048
  24. ADVAIR DISKUS [Concomitant]
     Active Substance: FLUTICASONE PROPIONATE\SALMETEROL XINAFOATE
     Dosage: UNK
  25. METOPROLOL TARTRATE. [Concomitant]
     Active Substance: METOPROLOL TARTRATE
  26. CREON [Concomitant]
     Active Substance: PANCRELIPASE AMYLASE\PANCRELIPASE LIPASE\PANCRELIPASE PROTEASE
     Dosage: 6 CAPSULES, 3X/DAY
     Route: 048
  27. LOVENOX [Concomitant]
     Active Substance: ENOXAPARIN SODIUM
     Dosage: 50 MG, 2X/DAY
     Route: 058
  28. LOPRESSOR [Concomitant]
     Active Substance: METOPROLOL TARTRATE
     Dosage: 75 MG, 2X/DAY
  29. SIMETHICONE (DIMETHICONE) [Concomitant]
     Active Substance: DIMETHICONE
     Dosage: 80 MG, 4X/DAY AS NEEDED
     Route: 048
  30. SODIUM CHLORIDE. [Concomitant]
     Active Substance: SODIUM CHLORIDE
     Dosage: 3 ML, 2X/DAY
  31. CLOLAR [Concomitant]
     Active Substance: CLOFARABINE
  32. CLOFAZIMINE [Concomitant]
     Active Substance: CLOFAZIMINE
     Dosage: 100 MG, 1X/DAY
     Route: 048
  33. FERROUS GLUCONATE [Concomitant]
     Active Substance: FERROUS GLUCONATE
     Dosage: 324 MG, 1X/DAY
     Route: 048
  34. VITAMIN B6 [Concomitant]
     Active Substance: PYRIDOXINE HYDROCHLORIDE
     Dosage: 50 MG, 1X/DAY
     Route: 048
  35. PROGRAF [Concomitant]
     Active Substance: TACROLIMUS
     Dosage: 1 MG, 2X/DAY
     Route: 048
  36. SILDENAFIL. [Concomitant]
     Active Substance: SILDENAFIL
  37. DULOXETINE DR [Concomitant]
     Active Substance: DULOXETINE
  38. OMEPRAZOLE. [Concomitant]
     Active Substance: OMEPRAZOLE
  39. PRAVASTATIN. [Concomitant]
     Active Substance: PRAVASTATIN
  40. ALBUTEROL. [Concomitant]
     Active Substance: ALBUTEROL
     Dosage: INHALE 2 PUFFS INTO THE LUNGS EVERY 6 HOURS AS NEEDED
  41. VITAMIN D3 [Concomitant]
     Active Substance: CHOLECALCIFEROL
     Dosage: 1000 U, 1X/DAY
     Route: 048
  42. PRAVACHOL [Concomitant]
     Active Substance: PRAVASTATIN SODIUM
     Dosage: 80 MG, 1X/DAY
     Route: 048
  43. PREDNISONE. [Concomitant]
     Active Substance: PREDNISONE
  44. DEXTROAMPHET SACCHARAT, AMPHET ASPARTATE, DEXTROAMPHET SULFATE AND AMPHET SULFAT [Concomitant]
     Active Substance: AMPHETAMINE ASPARTATE\AMPHETAMINE SULFATE\DEXTROAMPHETAMINE SACCHARATE\DEXTROAMPHETAMINE SULFATE
  45. GABAPENTIN. [Concomitant]
     Active Substance: GABAPENTIN
  46. TACROLIMUS. [Concomitant]
     Active Substance: TACROLIMUS
  47. CYMBALTA [Concomitant]
     Active Substance: DULOXETINE HYDROCHLORIDE
     Dosage: 60 MG, 1X/DAY
     Route: 048
  48. TYLENOL [Concomitant]
     Active Substance: ACETAMINOPHEN
     Dosage: 325 MG-650 MG, AS NEEDED EVERY 6 HOURS
     Route: 048
  49. MAG-OX [Concomitant]
     Active Substance: MAGNESIUM OXIDE
     Dosage: 800 MG, 3X/DAY
     Route: 048
  50. CIALIS [Concomitant]
     Active Substance: TADALAFIL
     Dosage: 5 MG, 1X/DAY AS NEEDED
     Route: 048
  51. SIVEXTRO [Concomitant]
     Active Substance: TEDIZOLID PHOSPHATE
     Dosage: 200 MG, 1X/DAY
     Route: 048
  52. ACYCLOVIR. [Concomitant]
     Active Substance: ACYCLOVIR

REACTIONS (12)
  - Acute kidney injury [Recovering/Resolving]
  - Sinus tachycardia [Recovering/Resolving]
  - Incorrect product administration duration [Not Recovered/Not Resolved]
  - Respiratory failure [Recovering/Resolving]
  - Aspiration [Recovering/Resolving]
  - Weight decreased [Not Recovered/Not Resolved]
  - Candida infection [Unknown]
  - Off label use [Not Recovered/Not Resolved]
  - Pneumonia [Recovering/Resolving]
  - Acute lung injury [Recovering/Resolving]
  - Death [Fatal]
  - Implant site extravasation [Recovering/Resolving]

NARRATIVE: CASE EVENT DATE: 2020
